FAERS Safety Report 5104590-5 (Version None)
Quarter: 2006Q3

REPORT INFORMATION
  Report Type: 
  Country: None (occurrence: None)
  Receive Date: 20060914
  Receipt Date: 20051122
  Transmission Date: 20061208
  Serious: No
  Sender: FDA-Public Use
  Company Number: US-BRISTOL-MYERS SQUIBB COMPANY-13190673

PATIENT
  Age: 76 Year
  Sex: Male
  Weight: 90 kg

DRUGS (3)
  1. BUSPAR [Suspect]
     Indication: ANXIETY
     Route: 048
     Dates: start: 20051119
  2. BUSPAR [Suspect]
     Indication: HYPERTENSION
     Route: 048
     Dates: start: 20051119
  3. FLOMAX [Concomitant]

REACTIONS (1)
  - AGEUSIA [None]
